FAERS Safety Report 4412108-5 (Version None)
Quarter: 2004Q3

REPORT INFORMATION
  Report Type: 
  Country: None (occurrence: None)
  Receive Date: 20040730
  Receipt Date: 20040720
  Transmission Date: 20050211
  Serious: Yes (Hospitalization)
  Sender: FDA-Public Use
  Company Number: GB-GLAXOSMITHKLINE-B0339905A

PATIENT
  Age: 55 Year
  Sex: Female

DRUGS (5)
  1. AVANDIA [Suspect]
     Dosage: 40MG PER DAY
     Route: 048
     Dates: start: 20040520, end: 20040628
  2. THYROXINE [Concomitant]
     Dosage: 125MCG PER DAY
     Route: 048
  3. IPRATROPIUM BROMIDE [Concomitant]
     Dosage: 500MCG PER DAY
     Route: 065
  4. GLICLAZIDE [Concomitant]
     Dosage: 160MG PER DAY
     Route: 048
  5. ALBUTEROL SULFATE [Concomitant]
     Dosage: 2PUFF UNKNOWN
     Route: 065

REACTIONS (2)
  - ABDOMINAL PAIN [None]
  - VOMITING [None]
